FAERS Safety Report 22193851 (Version 3)
Quarter: 2024Q4

REPORT INFORMATION
  Report Type: Spontaneous
  Country: BR (occurrence: BR)
  Receive Date: 20230410
  Receipt Date: 20241010
  Transmission Date: 20250115
  Serious: Yes (Disabling)
  Sender: CELLTRION
  Company Number: BR-CELLTRION INC.-2023BR006911

PATIENT

DRUGS (7)
  1. INFLIXIMAB [Suspect]
     Active Substance: INFLIXIMAB
     Indication: Psoriasis
     Dosage: 4 AMPOULES EVERY 60 DAYS
     Route: 042
     Dates: start: 20221014
  2. HYDROCHLOROTHIAZIDE [Concomitant]
     Active Substance: HYDROCHLOROTHIAZIDE
     Indication: Hypertension
     Dosage: 1 PILL PER DAY, START: 10 YEARS AGO, STOP: ONGOING
     Route: 048
  3. AMLODIPINE [Concomitant]
     Active Substance: AMLODIPINE BESYLATE
     Indication: Hypertension
     Dosage: 2 PILLS PER DAY, START: 10 YEARS AGO, STOP: ONGOING
  4. LOSARTAN [Concomitant]
     Active Substance: LOSARTAN
     Indication: Hypertension
     Dosage: 2 PILLS PER DAY, START: 15 YEARS AGO, STOP: ONGOING
     Route: 048
  5. METFORMIN [Concomitant]
     Active Substance: METFORMIN HYDROCHLORIDE
     Indication: Diabetes mellitus
     Dosage: 1 PILL PER DAY, START: 30 YEARS AGO, STOP: ONGOING
     Route: 048
  6. INSULIN HUMAN [Concomitant]
     Active Substance: INSULIN HUMAN
     Indication: Diabetes mellitus
     Dosage: 60 UNITS PER DAY, INJECTABLE, START: 20 YEARS AGO, STOP: ONGOING
  7. INSULIN NOS [Concomitant]
     Active Substance: INSULIN NOS
     Indication: Diabetes mellitus
     Dosage: 5 UNITS PER DAY, INJECTABLE, START: 5 YEARS AGO, STOP: ONGOING

REACTIONS (4)
  - Gait inability [Unknown]
  - Therapeutic response changed [Unknown]
  - Product substitution issue [Unknown]
  - Therapeutic response shortened [Unknown]
